FAERS Safety Report 8120680-7 (Version None)
Quarter: 2012Q1

REPORT INFORMATION
  Report Type: 
  Country: None (occurrence: None)
  Receive Date: 20120207
  Receipt Date: 20120127
  Transmission Date: 20120608
  Serious: Yes (Hospitalization, Other)
  Sender: FDA-Public Use
  Company Number: JP-ROCHE-1035972

PATIENT
  Sex: Male

DRUGS (12)
  1. SULFAMETHOXAZOLE [Concomitant]
     Indication: PROPHYLAXIS
     Route: 048
     Dates: start: 20010131, end: 20010730
  2. MYCOPHENOLATE MOFETIL (CELLCEPT) [Suspect]
     Indication: PROPHYLAXIS AGAINST TRANSPLANT REJECTION
     Route: 048
     Dates: start: 20030101
  3. CYCLOSPORINE [Suspect]
     Indication: PROPHYLAXIS AGAINST TRANSPLANT REJECTION
     Dosage: 0-450MG
     Route: 048
     Dates: start: 20030131
  4. SULFAMETHOXAZOLE [Concomitant]
     Route: 048
     Dates: start: 20050131
  5. ASPIRIN [Concomitant]
     Route: 048
     Dates: start: 20050131
  6. ENALAPRIL MALEATE [Concomitant]
     Route: 048
     Dates: start: 20050608
  7. ADALAT [Concomitant]
     Route: 048
     Dates: start: 20050131, end: 20060130
  8. PRAVASTATIN SODIUM [Concomitant]
     Indication: PROPHYLAXIS
     Route: 048
     Dates: start: 20050131
  9. CERTICAN [Concomitant]
     Indication: PROPHYLAXIS AGAINST TRANSPLANT REJECTION
     Dosage: 1-2.25MG
     Route: 048
     Dates: start: 20070713, end: 20080130
  10. MYCOPHENOLATE MOFETIL (CELLCEPT) [Suspect]
     Route: 048
  11. PREDNISOLONE [Concomitant]
     Indication: PROPHYLAXIS AGAINST TRANSPLANT REJECTION
     Route: 048
     Dates: start: 20030131
  12. ASPIRIN [Concomitant]
     Indication: PROPHYLAXIS
     Route: 048
     Dates: start: 20010131, end: 20010730

REACTIONS (6)
  - MELAENA [None]
  - RENAL HYPERTENSION [None]
  - LARGE INTESTINAL ULCER [None]
  - DIVERTICULITIS [None]
  - VIITH NERVE PARALYSIS [None]
  - RENAL FAILURE [None]
